FAERS Safety Report 3789397 (Version 7)
Quarter: 2020Q3

REPORT INFORMATION
  Report Type: Report from Study
  Country: RU (occurrence: RU)
  Receive Date: 20020426
  Receipt Date: 20040826
  Transmission Date: 20201104
  Serious: Yes (Hospitalization)
  Sender: FDA-Public Use
  Company Number: EMADSS2002002564

PATIENT
  Age: 62 Year
  Sex: Female
  Weight: 95 kg

DRUGS (8)
  1. PLACEBO [Suspect]
     Active Substance: UNSPECIFIED INGREDIENT
     Indication: ESSENTIAL HYPERTENSION
     Route: 049
     Dates: start: 20010727, end: 20020415
  2. NO?SPA [Concomitant]
     Indication: CHOLELITHIASIS
     Route: 049
     Dates: start: 20011126, end: 20020417
  3. DROTAVERINE HYDROCHLORIDE [Concomitant]
     Active Substance: DROTAVERINE HYDROCHLORIDE
     Route: 049
     Dates: start: 20011126, end: 20020417
  4. NO?SPA [Concomitant]
     Route: 030
     Dates: start: 20020417
  5. ISOSORBIDE DINITRATE. [Concomitant]
     Active Substance: ISOSORBIDE DINITRATE
     Route: 049
     Dates: start: 1992
  6. ENALAPRIL [Concomitant]
     Active Substance: ENALAPRIL
     Indication: HYPERTENSION
     Route: 049
     Dates: start: 200002
  7. DROTAVERINE HYDROCHLORIDE [Concomitant]
     Active Substance: DROTAVERINE HYDROCHLORIDE
     Route: 030
     Dates: start: 20020417
  8. PLACEBO [Suspect]
     Active Substance: UNSPECIFIED INGREDIENT
     Indication: OBESITY
     Route: 049
     Dates: start: 20010727, end: 20020415

REACTIONS (8)
  - Pancreatitis chronic [Recovered/Resolved]
  - Gastritis [None]
  - Biliary colic [Recovered/Resolved]
  - Cholelithiasis [Recovered/Resolved]
  - Condition aggravated [None]
  - Ventricular hypertrophy [None]
  - Cholecystitis chronic [None]
  - Hydronephrosis [None]

NARRATIVE: CASE EVENT DATE: 20020417
